FAERS Safety Report 9663002 (Version 1)
Quarter: 2013Q4

REPORT INFORMATION
  Report Type: Spontaneous
  Country: US (occurrence: US)
  Receive Date: 20131031
  Receipt Date: 20131031
  Transmission Date: 20140711
  Serious: No
  Sender: FDA-Public Use
  Company Number: US-PURDUE-USA-2011-0075927

PATIENT
  Sex: Male

DRUGS (2)
  1. OXYCONTIN (NDA 22-272) [Suspect]
     Indication: PAIN
     Dosage: 80 MG, TID
  2. OXYCODONE HCL IR CAPSULES [Suspect]
     Indication: PAIN
     Dosage: 30 MG, QID

REACTIONS (3)
  - Inadequate analgesia [Unknown]
  - Therapeutic response delayed [Unknown]
  - Medication residue present [Unknown]
